FAERS Safety Report 6746766-7 (Version None)
Quarter: 2010Q2

REPORT INFORMATION
  Report Type: 
  Country: None (occurrence: None)
  Receive Date: 20100528
  Receipt Date: 20091124
  Transmission Date: 20101027
  Serious: No
  Sender: FDA-Public Use
  Company Number: A0804824A

PATIENT
  Sex: Female

DRUGS (1)
  1. VENTOLIN HFA [Suspect]
     Indication: BRONCHOSPASM
     Route: 055

REACTIONS (4)
  - BURNING SENSATION [None]
  - DRUG INEFFECTIVE [None]
  - NON-CARDIAC CHEST PAIN [None]
  - PRODUCT QUALITY ISSUE [None]
